FAERS Safety Report 8223879-4 (Version None)
Quarter: 2012Q1

REPORT INFORMATION
  Report Type: 
  Country: None (occurrence: None)
  Receive Date: 20120321
  Receipt Date: 20120315
  Transmission Date: 20120608
  Serious: Yes (Other)
  Sender: FDA-Public Use
  Company Number: US-PFIZER INC-2012069145

PATIENT
  Sex: Male

DRUGS (1)
  1. XANAX [Suspect]
     Dosage: 2 MG, UNK

REACTIONS (3)
  - DRUG INEFFECTIVE [None]
  - PANIC ATTACK [None]
  - URTICARIA [None]
